FAERS Safety Report 11267835 (Version 1)
Quarter: 2015Q3

REPORT INFORMATION
  Report Type: Spontaneous
  Country: US (occurrence: US)
  Receive Date: 20150713
  Receipt Date: 20150713
  Transmission Date: 20151125
  Serious: No
  Sender: FDA-Public Use
  Company Number: US-MPIJNJ-2014MPI000173

PATIENT
  Sex: Female

DRUGS (1)
  1. VELCADE [Suspect]
     Active Substance: BORTEZOMIB
     Indication: BONE CANCER
     Dosage: 2.3 MG, UNK

REACTIONS (2)
  - Product use issue [None]
  - Anaemia [Unknown]
